FAERS Safety Report 18212356 (Version 1)
Quarter: 2020Q3

REPORT INFORMATION
  Report Type: Spontaneous
  Country: DE (occurrence: DE)
  Receive Date: 20200831
  Receipt Date: 20200831
  Transmission Date: 20201103
  Serious: Yes (Hospitalization)
  Sender: FDA-Public Use
  Company Number: DE-009507513-2008DEU012038

PATIENT
  Age: 77 Year
  Sex: Male
  Weight: 83.3 kg

DRUGS (16)
  1. PACLITAXEL. [Concomitant]
     Active Substance: PACLITAXEL
     Dosage: LAST 20012020
  2. AMLODIPINE [Concomitant]
     Active Substance: AMLODIPINE BESYLATE
     Dosage: 5 MG, 1?0?0?0
     Route: 048
  3. DEXAMETHASONE. [Suspect]
     Active Substance: DEXAMETHASONE
     Dosage: 4 MG, 1?1?1?0
     Route: 048
  4. ASPIRIN. [Concomitant]
     Active Substance: ASPIRIN
     Dosage: 100 MG, 1?0?0?0
     Route: 048
  5. XIPAMIDE [Concomitant]
     Active Substance: XIPAMIDE
     Dosage: 20 MG, 1?0?0?0
     Route: 048
  6. MAGNESIUM CITRATE. [Concomitant]
     Active Substance: MAGNESIUM CITRATE
     Dosage: NK MG, 1?0?0?0
     Route: 048
  7. CARBOPLATIN. [Concomitant]
     Active Substance: CARBOPLATIN
     Dosage: LAST 20012020
  8. TORSEMIDE. [Concomitant]
     Active Substance: TORSEMIDE
     Dosage: 5 MG, 1?0?0?0
     Route: 048
  9. PEMBROLIZUMAB. [Suspect]
     Active Substance: PEMBROLIZUMAB
     Dosage: LAST 20012020
  10. KALIUM VERLA [Concomitant]
     Active Substance: POTASSIUM CITRATE
     Dosage: NK MG, 1?0?0?0
     Route: 048
  11. LEVOTHYROXINE SODIUM. [Concomitant]
     Active Substance: LEVOTHYROXINE SODIUM
     Dosage: 75 MICROGRAM, 1?0?0?0
     Route: 048
  12. FOLSAN [Concomitant]
     Active Substance: FOLIC ACID
     Dosage: 0.4 MG, 1?0?0?0
     Route: 048
  13. EDOXABAN [Concomitant]
     Active Substance: EDOXABAN TOSYLATE
     Dosage: 60 MG, 1?0?0?0
     Route: 048
  14. ATORVASTATIN [Concomitant]
     Active Substance: ATORVASTATIN
     Dosage: 20 MG, 0?0?1?0
     Route: 048
  15. BISOPROLOL [Concomitant]
     Active Substance: BISOPROLOL
     Dosage: 2.5 MG, 1?0?0?0
     Route: 048
  16. COTRIM FORTE [Concomitant]
     Active Substance: SULFAMETHOXAZOLE\TRIMETHOPRIM
     Dosage: 800/60 MG/3X WEEK, MONDAY, WEDNESDAY, FRIDAY ONCE
     Route: 048

REACTIONS (2)
  - General physical health deterioration [Recovering/Resolving]
  - Hyperglycaemia [Recovering/Resolving]
